FAERS Safety Report 23667866 (Version 1)
Quarter: 2024Q1

REPORT INFORMATION
  Report Type: Spontaneous
  Country: US (occurrence: US)
  Receive Date: 20240325
  Receipt Date: 20240325
  Transmission Date: 20240410
  Serious: No
  Sender: FDA-Public Use
  Company Number: US-PFIZER INC-202400057417

PATIENT
  Age: 35 Year
  Sex: Female
  Weight: 99.79 kg

DRUGS (3)
  1. DEPO-PROVERA [Suspect]
     Active Substance: MEDROXYPROGESTERONE ACETATE
     Indication: Contraception
     Dosage: 104 MG
     Route: 058
  2. LAMOTRIGINE [Concomitant]
     Active Substance: LAMOTRIGINE
     Dosage: UNK
  3. DUPIXENT [Concomitant]
     Active Substance: DUPILUMAB
     Dosage: UNK

REACTIONS (3)
  - Poor quality device used [Unknown]
  - Device mechanical issue [Unknown]
  - Product administration error [Unknown]
